FAERS Safety Report 22114822 (Version 2)
Quarter: 2023Q2

REPORT INFORMATION
  Report Type: Spontaneous
  Country: CA (occurrence: CA)
  Receive Date: 20230320
  Receipt Date: 20230520
  Transmission Date: 20230721
  Serious: Yes (Hospitalization, Other)
  Sender: FDA-Public Use
  Company Number: CA-002147023-NVSC2023CA058429

PATIENT
  Age: 17 Year
  Sex: Female

DRUGS (1)
  1. CARBAMAZEPINE [Suspect]
     Active Substance: CARBAMAZEPINE
     Indication: Drug therapy
     Dosage: UNK
     Route: 065

REACTIONS (5)
  - Liver injury [Unknown]
  - Pancreatitis [Unknown]
  - Drug reaction with eosinophilia and systemic symptoms [Unknown]
  - Hypoalbuminaemia [Recovered/Resolved]
  - Pancreatic injury [Recovered/Resolved]
